FAERS Safety Report 6210295-X (Version None)
Quarter: 2009Q2

REPORT INFORMATION
  Report Type: 
  Country: None (occurrence: None)
  Receive Date: 20090529
  Receipt Date: 20090529
  Transmission Date: 20091009
  Serious: Yes (Life-Threatening, Hospitalization, Disabling)
  Sender: FDA-Public Use
  Company Number: None

PATIENT
  Age: 51 Year
  Sex: Male
  Weight: 82.1011 kg

DRUGS (2)
  1. BACLOFEN [Suspect]
     Indication: MUSCLE SPASMS
     Dosage: 10MG 3 TIMES A DAY PO
     Route: 048
     Dates: start: 20090507, end: 20090525
  2. BACLOFEN [Suspect]
     Indication: MUSCLE SPASMS
     Dosage: 10MG 3 TIMES A DAY PO
     Route: 048
     Dates: start: 20090525, end: 20090525

REACTIONS (1)
  - ATRIAL FIBRILLATION [None]
